FAERS Safety Report 19727585 (Version 14)
Quarter: 2022Q2

REPORT INFORMATION
  Report Type: Other
  Country: GB (occurrence: GB)
  Receive Date: 20210820
  Receipt Date: 20220419
  Transmission Date: 20220721
  Serious: Yes (Other)
  Sender: FDA-Public Use
  Company Number: None

PATIENT
  Age: 53 Year
  Sex: Male

DRUGS (215)
  1. PREDNISOLONE [Suspect]
     Active Substance: PREDNISOLONE
     Indication: Colitis ulcerative
     Dosage: 50 MILLIGRAM
     Route: 065
     Dates: start: 2009, end: 2009
  2. PREDNISOLONE [Suspect]
     Active Substance: PREDNISOLONE
     Dosage: 50 MILLIGRAM (TAPERED DOSE)
     Route: 065
     Dates: start: 2009, end: 2009
  3. PREDNISOLONE [Suspect]
     Active Substance: PREDNISOLONE
     Dosage: 50 MILLIGRAM
     Route: 065
  4. PREDNISOLONE [Suspect]
     Active Substance: PREDNISOLONE
     Dosage: UNK
     Route: 065
     Dates: start: 2017, end: 2017
  5. PREDNISOLONE [Suspect]
     Active Substance: PREDNISOLONE
     Dosage: UNK (TAPERED DOSE)
     Route: 065
     Dates: start: 2009
  6. PREDNISOLONE [Suspect]
     Active Substance: PREDNISOLONE
     Dosage: UNK
     Route: 065
  7. PREDNISOLONE [Suspect]
     Active Substance: PREDNISOLONE
     Dosage: UNK (TAPERED DOSE)
     Route: 065
     Dates: start: 2009, end: 2009
  8. PREDNISOLONE [Suspect]
     Active Substance: PREDNISOLONE
     Dosage: UNK
     Route: 065
     Dates: start: 2017
  9. PREDNISOLONE [Suspect]
     Active Substance: PREDNISOLONE
     Dosage: UNK
     Route: 065
     Dates: start: 2009, end: 2016
  10. PREDNISOLONE [Suspect]
     Active Substance: PREDNISOLONE
     Dosage: UNK
     Route: 065
     Dates: start: 2017, end: 2017
  11. PREDNISOLONE [Suspect]
     Active Substance: PREDNISOLONE
     Dosage: 40 MILLIGRAM, PER DAY
     Route: 048
  12. HYDROCORTISONE [Suspect]
     Active Substance: HYDROCORTISONE
     Indication: Colitis ulcerative
     Dosage: 1 DOSAGE FORM, QD
     Route: 048
  13. HYDROCORTISONE [Suspect]
     Active Substance: HYDROCORTISONE
     Dosage: UNK, AEROSOL, FOAM ENEMA
     Route: 065
  14. HYDROCORTISONE [Suspect]
     Active Substance: HYDROCORTISONE
     Dosage: UNK
     Route: 065
  15. HYDROCORTISONE [Suspect]
     Active Substance: HYDROCORTISONE
     Dosage: 1 DOSAGE FORM, QD (1 TIME DAILY )
     Route: 065
  16. HYDROCORTISONE [Suspect]
     Active Substance: HYDROCORTISONE
     Dosage: UNK, QD (1 PER DAY)
     Route: 048
  17. HYDROCORTISONE [Suspect]
     Active Substance: HYDROCORTISONE
     Dosage: UNK, QD (1 PER DAY)
     Route: 048
  18. HYDROCORTISONE [Suspect]
     Active Substance: HYDROCORTISONE
     Dosage: UNK
     Route: 065
  19. HYDROCORTISONE [Suspect]
     Active Substance: HYDROCORTISONE
     Dosage: 8 DOSAGE FORM, EVERY 8 WEEKS
     Route: 048
     Dates: start: 201707
  20. HYDROCORTISONE [Suspect]
     Active Substance: HYDROCORTISONE
     Dosage: UNK, EVERY 8 WEEKS
     Route: 048
  21. HYDROCORTISONE [Suspect]
     Active Substance: HYDROCORTISONE
     Dosage: 1 DOSAGE FORM, QD 1 TIME DAILY
     Route: 048
     Dates: start: 201707
  22. HYDROCORTISONE [Suspect]
     Active Substance: HYDROCORTISONE
     Dosage: UNK
     Route: 065
  23. HYDROCORTISONE [Suspect]
     Active Substance: HYDROCORTISONE
     Dosage: UNK
     Route: 065
  24. HYDROCORTISONE [Suspect]
     Active Substance: HYDROCORTISONE
     Dosage: 1 DOSAGE FORM, QD
     Route: 048
  25. HYDROCORTISONE [Suspect]
     Active Substance: HYDROCORTISONE
     Dosage: 1 DOSAGE FORM,QD, 1 TIME DAILY
     Route: 048
  26. HYDROCORTISONE [Suspect]
     Active Substance: HYDROCORTISONE
     Dosage: 1 DOSAGE FORM, QD
     Route: 048
  27. HYDROCORTISONE [Suspect]
     Active Substance: HYDROCORTISONE
     Dosage: 1 DOSAGE FORM, QD
     Route: 048
  28. HYDROCORTISONE [Suspect]
     Active Substance: HYDROCORTISONE
     Dosage: 8 DOSAGE FORM, QD
     Route: 048
     Dates: start: 201707
  29. HYDROCORTISONE [Suspect]
     Active Substance: HYDROCORTISONE
     Dosage: 8 DOSAGE FORM, QD
     Route: 048
     Dates: start: 201807
  30. HYDROCORTISONE [Suspect]
     Active Substance: HYDROCORTISONE
     Dosage: UNK, EVERY 8 WEEKS
     Route: 065
  31. HYDROCORTISONE [Suspect]
     Active Substance: HYDROCORTISONE
     Dosage: 8 DOSAGE FORM, EVERY 8 WEEKS
     Route: 065
  32. HYDROCORTISONE [Suspect]
     Active Substance: HYDROCORTISONE
     Dosage: UNK, EVERY 8 WEEKS (1 PER EVERY 8 WEEK)
     Route: 048
  33. HYDROCORTISONE [Suspect]
     Active Substance: HYDROCORTISONE
     Dosage: UNK
     Route: 042
  34. HYDROCORTISONE [Suspect]
     Active Substance: HYDROCORTISONE
     Dosage: 8 DOSAGE FORM, EVERY 8 WEEKS
     Route: 065
     Dates: start: 201707
  35. HYDROCORTISONE [Suspect]
     Active Substance: HYDROCORTISONE
     Dosage: 1 DOSAGE FORM, QD
     Route: 048
     Dates: start: 201807
  36. HYDROCORTISONE [Suspect]
     Active Substance: HYDROCORTISONE
     Dosage: UNK
     Route: 048
  37. HYDROCORTISONE [Suspect]
     Active Substance: HYDROCORTISONE
     Dosage: 1 DOSAGE FORM, QD
     Route: 048
     Dates: start: 201707
  38. HYDROCORTISONE [Suspect]
     Active Substance: HYDROCORTISONE
     Dosage: UNK
     Route: 065
     Dates: start: 201601, end: 201610
  39. HYDROCORTISONE [Suspect]
     Active Substance: HYDROCORTISONE
     Dosage: UNK
     Route: 065
     Dates: start: 201601, end: 201610
  40. HYDROCORTISONE [Suspect]
     Active Substance: HYDROCORTISONE
     Dosage: 8 DOSAGE FORM, EVERY 8 WEEKS
     Route: 048
     Dates: start: 201707
  41. HYDROCORTISONE [Suspect]
     Active Substance: HYDROCORTISONE
     Dosage: 8 DOSAGE FORM, EVERY 8 WEEKS
     Route: 048
     Dates: start: 201807
  42. HYDROCORTISONE [Suspect]
     Active Substance: HYDROCORTISONE
     Dosage: UNK
     Route: 061
  43. HYDROCORTISONE [Suspect]
     Active Substance: HYDROCORTISONE
     Dosage: 1 DOSAGE FORM, PER DAY
     Route: 048
     Dates: start: 201707
  44. HYDROCORTISONE [Suspect]
     Active Substance: HYDROCORTISONE
     Dosage: 4 DOSAGE FORM, QD
     Route: 048
     Dates: start: 201707
  45. HYDROCORTISONE [Suspect]
     Active Substance: HYDROCORTISONE
     Dosage: 1 DOSAGE FORM, EVERY 8 WEEKS
     Route: 048
  46. HYDROCORTISONE [Suspect]
     Active Substance: HYDROCORTISONE
     Dosage: 32 DOSAGE FORM, QD
     Route: 048
     Dates: start: 201707
  47. HYDROCORTISONE [Suspect]
     Active Substance: HYDROCORTISONE
     Dosage: 69 DOSAGE FORM
     Route: 065
  48. HYDROCORTISONE [Suspect]
     Active Substance: HYDROCORTISONE
     Dosage: 32 DOSAGE FORM, PER DAY (8 DOSAGE FORM, QD )
     Route: 048
     Dates: start: 201807
  49. HYDROCORTISONE [Suspect]
     Active Substance: HYDROCORTISONE
     Dosage: 4 UNK, QD, PER DAY
     Route: 048
  50. HYDROCORTISONE [Suspect]
     Active Substance: HYDROCORTISONE
     Dosage: 4 DOSAGE FORM PER DAY (1 DOSAGE FORM, QD )
     Route: 048
     Dates: start: 201707
  51. HYDROCORTISONE [Suspect]
     Active Substance: HYDROCORTISONE
     Dosage: 4 DOSAGE FORM PER DAY 1 DOSAGE FORM, QD
     Route: 048
     Dates: start: 201807
  52. HYDROCORTISONE [Suspect]
     Active Substance: HYDROCORTISONE
     Dosage: 8 DOSAGE FORM, EVERY 8 WEEKS
     Route: 048
     Dates: start: 201707
  53. HYDROCORTISONE [Suspect]
     Active Substance: HYDROCORTISONE
     Dosage: 32 DOSAGE FORM, PER DAY (8 DOSAGE FORM, QD )
     Route: 048
     Dates: start: 201807
  54. HYDROCORTISONE [Suspect]
     Active Substance: HYDROCORTISONE
     Dosage: 8 DOSAGE FORM, EVERY 8 WEEKS
     Route: 048
  55. HYDROCORTISONE [Suspect]
     Active Substance: HYDROCORTISONE
     Dosage: 4 DOSAGE FORM PER DAY (1 DOSAGE FORM, QD )
     Route: 048
  56. HYDROCORTISONE [Suspect]
     Active Substance: HYDROCORTISONE
     Dosage: 1 DOSAGE FORM, QD
     Route: 065
     Dates: start: 201707
  57. METHOTREXATE [Suspect]
     Active Substance: METHOTREXATE
     Indication: Colitis ulcerative
     Dosage: UNK
     Route: 065
     Dates: start: 20090101, end: 20160101
  58. METHOTREXATE [Suspect]
     Active Substance: METHOTREXATE
     Dosage: UNK
     Route: 065
  59. METHOTREXATE [Suspect]
     Active Substance: METHOTREXATE
     Dosage: UNK
     Route: 065
  60. METHOTREXATE [Suspect]
     Active Substance: METHOTREXATE
     Dosage: UNK
     Route: 065
  61. METHOTREXATE [Suspect]
     Active Substance: METHOTREXATE
     Dosage: UNK
     Route: 065
     Dates: start: 201709, end: 201709
  62. WARFARIN [Suspect]
     Active Substance: WARFARIN
     Indication: Deep vein thrombosis
     Dosage: UNK
     Route: 065
  63. WARFARIN [Suspect]
     Active Substance: WARFARIN
     Indication: Colitis ulcerative
     Dosage: UNK
     Route: 065
  64. WARFARIN [Suspect]
     Active Substance: WARFARIN
     Dosage: UNK (TAPERED DOSE) (STOP DT 2009)
     Route: 065
  65. WARFARIN [Suspect]
     Active Substance: WARFARIN
     Dosage: UNK, TAPERED DOSE (STOP DATE 2019)
     Route: 065
  66. WARFARIN [Suspect]
     Active Substance: WARFARIN
     Dosage: 8 DOSAGE FORM, EVERY 8 WEEKS
     Route: 048
     Dates: start: 201707
  67. WARFARIN [Suspect]
     Active Substance: WARFARIN
     Dosage: UNK (STOP DT 2019)
     Route: 065
  68. WARFARIN [Suspect]
     Active Substance: WARFARIN
     Dosage: 1 DOSAGE FORM, QD
     Route: 048
     Dates: start: 201707
  69. WARFARIN [Suspect]
     Active Substance: WARFARIN
     Dosage: UNK (STOP DT 2009)
     Route: 048
  70. WARFARIN [Suspect]
     Active Substance: WARFARIN
     Dosage: UNK
     Route: 065
     Dates: start: 2019
  71. WARFARIN [Suspect]
     Active Substance: WARFARIN
     Dosage: UNK
     Route: 065
     Dates: start: 2009
  72. WARFARIN [Suspect]
     Active Substance: WARFARIN
     Dosage: 1 DOSAGE FORM PER DAY
     Route: 048
  73. WARFARIN [Suspect]
     Active Substance: WARFARIN
     Dosage: UNK (TAPERED DOSE) (STOP DT 2009)
     Route: 065
  74. WARFARIN [Suspect]
     Active Substance: WARFARIN
     Dosage: UNK
     Route: 065
     Dates: start: 2009
  75. WARFARIN [Suspect]
     Active Substance: WARFARIN
     Dosage: UNK (TAPERED DOSE IN 2009)
     Route: 065
  76. WARFARIN [Suspect]
     Active Substance: WARFARIN
     Dosage: UNK
     Route: 048
     Dates: start: 2009, end: 2009
  77. BUDESONIDE [Suspect]
     Active Substance: BUDESONIDE
     Indication: Colitis ulcerative
     Dosage: 8 DOSAGE FORM, EVERY 8 WEEKS
     Route: 048
     Dates: start: 201707
  78. BUDESONIDE [Suspect]
     Active Substance: BUDESONIDE
     Dosage: 8 DOSAGE FORM, EVERY 8 WEEKS
     Route: 048
     Dates: start: 200707
  79. BUDESONIDE [Suspect]
     Active Substance: BUDESONIDE
     Dosage: 1 DOSAGE FORM, QD
     Route: 048
     Dates: start: 20170701
  80. BUDESONIDE [Suspect]
     Active Substance: BUDESONIDE
     Dosage: UNK, EVERY 8 WEEKS (1 PER 8 WEEK)
     Route: 048
     Dates: start: 201707
  81. BUDESONIDE [Suspect]
     Active Substance: BUDESONIDE
     Dosage: 1 DOSAGE FORM, EVERY 8 WEEKS (EVERY 2 MON)
     Route: 048
     Dates: start: 201707
  82. BUDESONIDE [Suspect]
     Active Substance: BUDESONIDE
     Dosage: 1 DOSAGE FORM, PER CYCLE
     Route: 048
     Dates: start: 20070701
  83. BUDESONIDE [Suspect]
     Active Substance: BUDESONIDE
     Dosage: 8 DOSAGE FORM, CYCLICAL (Q8WEEKS)
     Route: 048
     Dates: start: 200707
  84. BUDESONIDE [Suspect]
     Active Substance: BUDESONIDE
     Dosage: 8 DOSAGE FORM, CYCLICAL (EVERY 8 WEEKS)
     Route: 048
     Dates: start: 201707
  85. BUDESONIDE [Suspect]
     Active Substance: BUDESONIDE
     Dosage: UNK
     Route: 065
  86. BUDESONIDE [Suspect]
     Active Substance: BUDESONIDE
     Dosage: 1 DOSAGE FORM, EVERY 8 WEEKS
     Route: 048
     Dates: start: 201707
  87. BUDESONIDE [Suspect]
     Active Substance: BUDESONIDE
     Dosage: 8 DOSAGE FORM, CYCLICAL
     Route: 048
     Dates: start: 201706
  88. BUDESONIDE [Suspect]
     Active Substance: BUDESONIDE
     Dosage: UNK, EVERY 8 WEEKS (TABLET)
     Route: 048
  89. BUDESONIDE [Suspect]
     Active Substance: BUDESONIDE
     Dosage: UNK, EVERY 8 WEEKS (TABLET)
     Route: 048
  90. BUDESONIDE [Suspect]
     Active Substance: BUDESONIDE
     Dosage: 8 DOSAGE FORM, QD
     Route: 048
     Dates: start: 201707
  91. BUDESONIDE [Suspect]
     Active Substance: BUDESONIDE
     Dosage: UNK, EVERY 8 WEEKS (1 PER 8 WEEK)
     Route: 048
     Dates: start: 200707
  92. BUDESONIDE [Suspect]
     Active Substance: BUDESONIDE
     Dosage: UNK
     Route: 048
  93. BUDESONIDE [Suspect]
     Active Substance: BUDESONIDE
     Dosage: 1 DOSAGE FORM, QD (PROLONGED-RELEASE TABLET)
     Route: 048
     Dates: start: 201707
  94. BUDESONIDE [Suspect]
     Active Substance: BUDESONIDE
     Dosage: 1 DOSAGE FORM, QD 1 TIME DAILY
     Route: 048
     Dates: start: 201707
  95. BUDESONIDE [Suspect]
     Active Substance: BUDESONIDE
     Dosage: 212 DOSAGE FORM
     Route: 048
     Dates: start: 201707
  96. BUDESONIDE [Suspect]
     Active Substance: BUDESONIDE
     Dosage: 8 DOSAGE FORM, EVERY 8 WEEKS
     Route: 048
  97. BUDESONIDE [Suspect]
     Active Substance: BUDESONIDE
     Dosage: 245 DOSAGE FORM, EVERY 8 WEEKS
     Route: 048
  98. BUDESONIDE [Suspect]
     Active Substance: BUDESONIDE
     Dosage: 4 DOSAGE FORM, 1 DOSAGE FORM, QD
     Route: 048
     Dates: start: 201707
  99. BUDESONIDE [Suspect]
     Active Substance: BUDESONIDE
     Dosage: 1 DOSAGE FORM, QD
     Route: 048
     Dates: start: 20170701
  100. BUDESONIDE [Suspect]
     Active Substance: BUDESONIDE
     Dosage: 8 DOSAGE FORM, EVERY 8 WEEKS
     Route: 048
     Dates: start: 200707
  101. BUDESONIDE [Suspect]
     Active Substance: BUDESONIDE
     Dosage: UNK
     Route: 048
  102. BUDESONIDE [Suspect]
     Active Substance: BUDESONIDE
     Dosage: 8 DOSAGE FORM
     Route: 048
     Dates: start: 201707
  103. BUDESONIDE [Suspect]
     Active Substance: BUDESONIDE
     Dosage: UNK, EVERY 8 WEEKS (TABLET)
     Route: 048
  104. ASACOL [Suspect]
     Active Substance: MESALAMINE
     Indication: Colitis ulcerative
     Dosage: 50 MILLIGRAM
     Route: 048
     Dates: start: 20160101, end: 20161001
  105. ASACOL [Suspect]
     Active Substance: MESALAMINE
     Dosage: 4.8 GRAM DAILY, (0.8 G, 3 TAB 2 TIMES A DAY)
     Route: 065
     Dates: start: 20161001
  106. ASACOL [Suspect]
     Active Substance: MESALAMINE
     Dosage: UNK
     Route: 065
     Dates: start: 20170101
  107. ASACOL [Suspect]
     Active Substance: MESALAMINE
     Dosage: UNK
     Route: 065
  108. ASACOL [Suspect]
     Active Substance: MESALAMINE
     Dosage: 6 DOSAGE FORM PER DAY (0.8 G, 3 TAB 2 TIMES A DAY)
     Route: 065
     Dates: start: 20161001
  109. ASACOL [Suspect]
     Active Substance: MESALAMINE
     Dosage: UNK
     Route: 065
     Dates: start: 20160101, end: 20161001
  110. ASACOL [Suspect]
     Active Substance: MESALAMINE
     Dosage: 50 MILLIGRAM
     Route: 065
     Dates: start: 20170101, end: 20170901
  111. ASACOL [Suspect]
     Active Substance: MESALAMINE
     Dosage: 8 DOSAGE FORM, EVERY 8 WEEKS
     Route: 048
     Dates: start: 201707
  112. ASACOL [Suspect]
     Active Substance: MESALAMINE
     Dosage: 4.8 GRAM, QD (0.8 G, 3 TAB 2 TIMES A DAY)
     Route: 065
     Dates: start: 20161001
  113. ASACOL [Suspect]
     Active Substance: MESALAMINE
     Dosage: 2.4 GRAM, QD (0.8 G, 3 TAB 2 TIMES A DAY) (CUMULATIVE DOSE TO FIRST REACTION: 7670.3 G)
     Route: 065
     Dates: start: 20161001
  114. ASACOL [Suspect]
     Active Substance: MESALAMINE
     Dosage: UNK
     Route: 065
  115. ASACOL [Suspect]
     Active Substance: MESALAMINE
     Dosage: 3 DOSAGE FORM, BID (2 DAYS)
     Route: 065
     Dates: start: 20161001
  116. ASACOL [Suspect]
     Active Substance: MESALAMINE
     Dosage: UNK
     Route: 048
     Dates: start: 20160101, end: 20161001
  117. ASACOL [Suspect]
     Active Substance: MESALAMINE
     Dosage: UNK
     Route: 065
     Dates: start: 201709, end: 2017
  118. ASACOL [Suspect]
     Active Substance: MESALAMINE
     Dosage: 50 MILLIGRAM; UNK
     Route: 065
     Dates: start: 20160101, end: 20161001
  119. ASACOL [Suspect]
     Active Substance: MESALAMINE
     Dosage: 2.4 MILLIGRAM, QD
     Route: 065
     Dates: start: 20161001
  120. ASACOL [Suspect]
     Active Substance: MESALAMINE
     Dosage: 6 DOSAGE FORM, DAILY, 0.8 G, 3 TAB 2 TIMES A DAY)
     Route: 065
     Dates: start: 201610
  121. ASACOL [Suspect]
     Active Substance: MESALAMINE
     Dosage: 3 DOSAGE FORM (0.8G, 3 TAB 2 TIMES A DAY (4.8 G DAILY)
     Route: 065
     Dates: start: 201610
  122. ASACOL [Suspect]
     Active Substance: MESALAMINE
     Dosage: 3 DOSAGE FORM (0.8G, 3 TAB 2 TIMES A DAY (4.8 G DAILY)
     Route: 065
  123. ASACOL [Suspect]
     Active Substance: MESALAMINE
     Dosage: UNK
     Route: 065
     Dates: start: 201709, end: 201709
  124. ASACOL [Suspect]
     Active Substance: MESALAMINE
     Dosage: UNK
     Route: 065
     Dates: start: 2017
  125. ASACOL [Suspect]
     Active Substance: MESALAMINE
     Dosage: UNK
     Route: 048
     Dates: start: 20160101, end: 201610
  126. ASACOL [Suspect]
     Active Substance: MESALAMINE
     Dosage: UNK
     Route: 065
     Dates: start: 20170101, end: 20170901
  127. ASACOL [Suspect]
     Active Substance: MESALAMINE
     Dosage: 50 MILLIGRAM
     Route: 065
     Dates: start: 2009
  128. ASACOL [Suspect]
     Active Substance: MESALAMINE
     Dosage: 3 GRAM, QD
     Route: 065
     Dates: start: 20161001
  129. ASACOL [Suspect]
     Active Substance: MESALAMINE
     Dosage: 4.8 MILLIGRAM; UNK
     Route: 065
     Dates: start: 20170101
  130. ASACOL [Suspect]
     Active Substance: MESALAMINE
     Dosage: UNK
     Route: 065
     Dates: start: 202109, end: 202109
  131. ASACOL [Suspect]
     Active Substance: MESALAMINE
     Dosage: 3 DOSAGE FORM, EVERY 12 HRS
     Route: 065
     Dates: start: 20161001
  132. ASACOL [Suspect]
     Active Substance: MESALAMINE
     Dosage: 6 DOSAGE FORM, QD
     Route: 065
     Dates: start: 201610
  133. ASACOL [Suspect]
     Active Substance: MESALAMINE
     Dosage: 4.8 GRAM, QD
     Route: 065
     Dates: start: 201610
  134. ASACOL [Suspect]
     Active Substance: MESALAMINE
     Dosage: UNK
     Route: 065
     Dates: start: 201601, end: 201610
  135. ASACOL [Suspect]
     Active Substance: MESALAMINE
     Dosage: UNK (STOP DT SEP 2017)
     Route: 065
     Dates: start: 2017
  136. ASACOL [Suspect]
     Active Substance: MESALAMINE
     Dosage: 6 DOSAGE FORM, BID
     Route: 065
     Dates: start: 201610
  137. ASACOL [Suspect]
     Active Substance: MESALAMINE
     Dosage: 2.4 GRAM, QD
     Route: 065
     Dates: start: 20161001
  138. ASACOL [Suspect]
     Active Substance: MESALAMINE
     Dosage: 50 MILLIGRAM
     Route: 048
     Dates: start: 20170101, end: 20170901
  139. ASACOL [Suspect]
     Active Substance: MESALAMINE
     Dosage: 8 DOSAGE FORM, EVERY 8 WEEKS
     Route: 048
     Dates: start: 201707
  140. ASACOL [Suspect]
     Active Substance: MESALAMINE
     Dosage: UNK
     Route: 065
  141. ASACOL [Suspect]
     Active Substance: MESALAMINE
     Dosage: UNK
     Route: 065
     Dates: start: 202109, end: 202109
  142. ASACOL [Suspect]
     Active Substance: MESALAMINE
     Dosage: UNK
     Route: 065
     Dates: start: 20160101, end: 20161001
  143. ASACOL [Suspect]
     Active Substance: MESALAMINE
     Dosage: 2.4 GRAM, BID (2.4 GRAM, QD, 0.8 G, 3 TAB 2 TIMES A DAY (4.8 G DAILY)
     Route: 065
     Dates: start: 20161001
  144. ASACOL [Suspect]
     Active Substance: MESALAMINE
     Dosage: UNK
     Route: 048
     Dates: start: 20160101, end: 20161001
  145. ASACOL [Suspect]
     Active Substance: MESALAMINE
     Dosage: UNK
     Route: 065
  146. ASACOL [Suspect]
     Active Substance: MESALAMINE
     Dosage: 4.8 MILLIGRAM, QD
     Route: 065
     Dates: start: 20161001
  147. ASACOL [Suspect]
     Active Substance: MESALAMINE
     Dosage: 50 MILLIGRAM
     Route: 048
     Dates: start: 20160101, end: 20161001
  148. ASACOL [Suspect]
     Active Substance: MESALAMINE
     Dosage: UNK
     Route: 065
     Dates: start: 20170101, end: 20170901
  149. ASACOL [Suspect]
     Active Substance: MESALAMINE
     Dosage: UNK (STOP DT SEP 2017)
     Route: 065
     Dates: start: 2017
  150. ASACOL [Suspect]
     Active Substance: MESALAMINE
     Dosage: UNK
     Route: 065
  151. ASACOL [Suspect]
     Active Substance: MESALAMINE
     Dosage: UNK
     Route: 065
     Dates: start: 20170101, end: 20170901
  152. ASACOL [Suspect]
     Active Substance: MESALAMINE
     Dosage: UNK
     Route: 065
  153. ASACOL [Suspect]
     Active Substance: MESALAMINE
     Dosage: 3 DOSAGE FORM, BID
     Route: 065
     Dates: start: 201610
  154. ENTYVIO [Suspect]
     Active Substance: VEDOLIZUMAB
     Indication: Colitis ulcerative
     Dosage: UNK
     Route: 042
     Dates: start: 2017
  155. ENTYVIO [Suspect]
     Active Substance: VEDOLIZUMAB
     Indication: Deep vein thrombosis
     Dosage: UNK (STOP DT 2017)
     Route: 042
  156. ENTYVIO [Suspect]
     Active Substance: VEDOLIZUMAB
     Dosage: UNK (DOSE FORM: 200)
     Route: 042
  157. ENTYVIO [Suspect]
     Active Substance: VEDOLIZUMAB
     Dosage: UNK
     Route: 048
     Dates: start: 2017, end: 2017
  158. ENTYVIO [Suspect]
     Active Substance: VEDOLIZUMAB
     Dosage: UNK
     Route: 065
  159. ENTYVIO [Suspect]
     Active Substance: VEDOLIZUMAB
     Dosage: UNK
     Route: 065
     Dates: start: 2017, end: 2017
  160. ENTYVIO [Suspect]
     Active Substance: VEDOLIZUMAB
     Dosage: UNK
     Route: 065
  161. ENTYVIO [Suspect]
     Active Substance: VEDOLIZUMAB
     Dosage: 1 DOSAGE FORM, QD
     Route: 048
  162. ENTYVIO [Suspect]
     Active Substance: VEDOLIZUMAB
     Dosage: UNK
     Route: 042
     Dates: start: 2017
  163. ENTYVIO [Suspect]
     Active Substance: VEDOLIZUMAB
     Dosage: UNK (DOSE FORM:200)
     Route: 042
     Dates: start: 2017, end: 2017
  164. ENTYVIO [Suspect]
     Active Substance: VEDOLIZUMAB
     Dosage: UNK
     Route: 048
     Dates: start: 2017, end: 2017
  165. ENTYVIO [Suspect]
     Active Substance: VEDOLIZUMAB
     Dosage: 1 DOSAGE FORM, QD
     Route: 048
  166. ENTYVIO [Suspect]
     Active Substance: VEDOLIZUMAB
     Dosage: UNK
     Route: 065
     Dates: start: 2019
  167. ENTYVIO [Suspect]
     Active Substance: VEDOLIZUMAB
     Dosage: UNK
     Route: 048
     Dates: start: 2017, end: 2017
  168. ENTYVIO [Suspect]
     Active Substance: VEDOLIZUMAB
     Dosage: UNK
     Route: 042
     Dates: start: 2017, end: 2017
  169. ENTYVIO [Suspect]
     Active Substance: VEDOLIZUMAB
     Dosage: UNK
     Route: 042
     Dates: start: 2017, end: 2017
  170. ENTYVIO [Suspect]
     Active Substance: VEDOLIZUMAB
     Dosage: UNK (DOSE FORM:200)
     Route: 048
     Dates: start: 2017, end: 2017
  171. HUMIRA [Suspect]
     Active Substance: ADALIMUMAB
     Indication: Crohn^s disease
     Dosage: UNK
     Route: 048
     Dates: start: 2017
  172. HUMIRA [Suspect]
     Active Substance: ADALIMUMAB
     Indication: Deep vein thrombosis
     Dosage: UNK
     Route: 065
  173. HUMIRA [Suspect]
     Active Substance: ADALIMUMAB
     Dosage: UNK
     Route: 065
  174. HUMIRA [Suspect]
     Active Substance: ADALIMUMAB
     Dosage: UNK
     Route: 065
  175. HUMIRA [Suspect]
     Active Substance: ADALIMUMAB
     Dosage: UNK
     Route: 065
  176. HUMIRA [Suspect]
     Active Substance: ADALIMUMAB
     Dosage: 8 DOSAGE FORM
     Route: 065
  177. HUMIRA [Suspect]
     Active Substance: ADALIMUMAB
     Dosage: 8 DOSAGE FORM
     Route: 048
     Dates: start: 201707
  178. HUMIRA [Suspect]
     Active Substance: ADALIMUMAB
     Dosage: 8 DOSAGE FORM
     Route: 048
     Dates: start: 201707
  179. HUMIRA [Suspect]
     Active Substance: ADALIMUMAB
     Dosage: 8 DOSAGE FORM
     Route: 048
     Dates: start: 201707
  180. HUMIRA [Suspect]
     Active Substance: ADALIMUMAB
     Dosage: UNK
     Route: 065
     Dates: end: 201707
  181. HUMIRA [Suspect]
     Active Substance: ADALIMUMAB
     Dosage: 8 DOSAGE FORM
     Route: 065
     Dates: start: 201707
  182. INFLECTRA [Suspect]
     Active Substance: INFLIXIMAB-DYYB
     Indication: Colitis ulcerative
     Dosage: UNK, CYCLICAL (1 CYCLICAL (0, 2, 6 WEEKS), THEN EVERY 8 WEEKS)
     Route: 042
  183. INFLECTRA [Suspect]
     Active Substance: INFLIXIMAB-DYYB
     Indication: Crohn^s disease
     Dosage: UNK (Q6 WEEKS)
     Route: 065
  184. INFLECTRA [Suspect]
     Active Substance: INFLIXIMAB-DYYB
     Dosage: UNK, CYCLICAL ( (0, 2, 6 WEEKS), EVERY 8 WEEKS)
     Route: 042
     Dates: start: 201709
  185. INFLECTRA [Suspect]
     Active Substance: INFLIXIMAB-DYYB
     Dosage: UNK
     Route: 042
     Dates: start: 20170101, end: 20170901
  186. INFLECTRA [Suspect]
     Active Substance: INFLIXIMAB-DYYB
     Dosage: UNK
     Route: 042
     Dates: start: 20170101, end: 20170901
  187. INFLECTRA [Suspect]
     Active Substance: INFLIXIMAB-DYYB
     Dosage: UNK
     Route: 042
     Dates: start: 201709
  188. INFLECTRA [Suspect]
     Active Substance: INFLIXIMAB-DYYB
     Dosage: UNK
     Route: 042
     Dates: start: 20170901
  189. INFLECTRA [Suspect]
     Active Substance: INFLIXIMAB-DYYB
     Dosage: 5 MILLIGRAM/KILOGRAM, AT 0, 2, 6 WEEKS, THEN, EVERY 8 WEEKS
     Route: 042
     Dates: start: 20171019
  190. INFLECTRA [Suspect]
     Active Substance: INFLIXIMAB-DYYB
     Dosage: UNK, (1 PER EVERY 6 WEEKS)
     Route: 065
     Dates: start: 201709
  191. INFLECTRA [Suspect]
     Active Substance: INFLIXIMAB-DYYB
     Dosage: UNK (EVERY 2 WEEKS)
     Route: 042
  192. INFLECTRA [Suspect]
     Active Substance: INFLIXIMAB-DYYB
     Dosage: UNK, EVERY 8 WEEKS (1 PER 8 WEEKS)
     Route: 042
     Dates: start: 20170101, end: 20170901
  193. INFLECTRA [Suspect]
     Active Substance: INFLIXIMAB-DYYB
     Dosage: UNK
     Route: 042
  194. INFLECTRA [Suspect]
     Active Substance: INFLIXIMAB-DYYB
     Dosage: 5 MILLIGRAM/KILOGRAM, AT 0, 2, 6 WEEKS, THEN, EVERY 8 WEEKS
     Route: 042
  195. INFLECTRA [Suspect]
     Active Substance: INFLIXIMAB-DYYB
     Dosage: 5 MILLIGRAM/KILOGRAM PER 8 WEEKS
     Route: 042
     Dates: start: 20170101, end: 20170901
  196. INFLECTRA [Suspect]
     Active Substance: INFLIXIMAB-DYYB
     Dosage: UNK, (1 PER EVERY 6 WEEKS)
     Route: 065
     Dates: start: 20171019
  197. INFLECTRA [Suspect]
     Active Substance: INFLIXIMAB-DYYB
     Dosage: UNK, EVERY 8 WEEKS
     Route: 042
     Dates: start: 20170101, end: 20170901
  198. INFLECTRA [Suspect]
     Active Substance: INFLIXIMAB-DYYB
     Dosage: UNK ( (0, 2, 6 WEEKS), THEN EVERY 8 WEEKS)
     Route: 042
     Dates: start: 201709
  199. INFLECTRA [Suspect]
     Active Substance: INFLIXIMAB-DYYB
     Dosage: UNK, CYCLICAL (1 CYCLICAL (0, 2, 6 WEEKS), THEN EVERY 8 WEEKS)
     Route: 042
  200. INFLECTRA [Suspect]
     Active Substance: INFLIXIMAB-DYYB
     Dosage: 5 MILLIGRAM/KILOGRAM, EVERY 8 WEEKS
     Route: 042
  201. INFLECTRA [Suspect]
     Active Substance: INFLIXIMAB-DYYB
     Dosage: UNK,Q6 WEEKS
     Route: 065
  202. INFLECTRA [Suspect]
     Active Substance: INFLIXIMAB-DYYB
     Dosage: UNK,Q6 WEEKS
     Route: 042
     Dates: start: 201709
  203. INFLECTRA [Suspect]
     Active Substance: INFLIXIMAB-DYYB
     Dosage: UNK, EVERY 8 WEEKS
     Route: 065
     Dates: start: 20171019
  204. INFLECTRA [Suspect]
     Active Substance: INFLIXIMAB-DYYB
     Dosage: UNK EVERY 2 WEEKS
     Route: 042
     Dates: start: 20171019
  205. SULFASALAZINE [Suspect]
     Active Substance: SULFASALAZINE
     Indication: Colitis ulcerative
     Dosage: UNK
     Route: 065
     Dates: start: 20090101, end: 20160101
  206. SULFASALAZINE [Suspect]
     Active Substance: SULFASALAZINE
     Indication: Arthritis
     Dosage: UNK
     Route: 065
     Dates: start: 20160101, end: 20160101
  207. SULFASALAZINE [Suspect]
     Active Substance: SULFASALAZINE
     Dosage: UNK
     Route: 065
     Dates: start: 2009, end: 2016
  208. SULFASALAZINE [Suspect]
     Active Substance: SULFASALAZINE
     Dosage: UNK
     Route: 065
     Dates: start: 20091001, end: 20161001
  209. SULFASALAZINE [Suspect]
     Active Substance: SULFASALAZINE
     Dosage: UNK
     Route: 065
  210. SULFASALAZINE [Suspect]
     Active Substance: SULFASALAZINE
     Dosage: UNK
     Route: 065
     Dates: start: 201709, end: 201709
  211. SULFASALAZINE [Suspect]
     Active Substance: SULFASALAZINE
     Dosage: UNK
     Route: 065
     Dates: start: 2009, end: 2016
  212. SULFASALAZINE [Suspect]
     Active Substance: SULFASALAZINE
     Dosage: UNK
     Route: 065
     Dates: start: 20160101, end: 20160101
  213. ALBENDAZOLE [Suspect]
     Active Substance: ALBENDAZOLE
     Indication: Colitis ulcerative
     Dosage: UNK
     Route: 042
     Dates: start: 2017, end: 2017
  214. XELJANZ [Concomitant]
     Active Substance: TOFACITINIB CITRATE
     Indication: Colitis ulcerative
     Dosage: 5 MILLIGRAM, BID
     Route: 048
  215. XELJANZ [Concomitant]
     Active Substance: TOFACITINIB CITRATE
     Dosage: 10 MILLIGRAM PER DAY 5 MILLIGRAM, BID
     Route: 048

REACTIONS (21)
  - Deep vein thrombosis [Unknown]
  - Bronchiectasis [Unknown]
  - Weight decreased [Unknown]
  - Weight decreased [Unknown]
  - Impaired quality of life [Unknown]
  - Loss of personal independence in daily activities [Unknown]
  - Loss of personal independence in daily activities [Unknown]
  - Frequent bowel movements [Unknown]
  - Condition aggravated [Unknown]
  - Colitis ulcerative [Unknown]
  - Condition aggravated [Unknown]
  - Medication error [Unknown]
  - Steroid dependence [Unknown]
  - Haematochezia [Unknown]
  - Rectal haemorrhage [Unknown]
  - Intentional product use issue [Not Recovered/Not Resolved]
  - Stress [Not Recovered/Not Resolved]
  - Inappropriate schedule of product administration [Not Recovered/Not Resolved]
  - Impaired work ability [Unknown]
  - Drug ineffective [Unknown]
  - Off label use [Unknown]

NARRATIVE: CASE EVENT DATE: 20080101
